FAERS Safety Report 24849610 (Version 1)
Quarter: 2025Q1

REPORT INFORMATION
  Report Type: Spontaneous
  Country: US (occurrence: None)
  Receive Date: 20250115
  Receipt Date: 20250115
  Transmission Date: 20250409
  Serious: Yes (Death)
  Sender: FDA-CTU
  Company Number: None

PATIENT
  Age: 87 Year
  Sex: Female
  Weight: 68.80 kg

DRUGS (2)
  1. CILOXAN [Suspect]
     Active Substance: CIPROFLOXACIN HYDROCHLORIDE
     Indication: Conjunctivitis
     Route: 047
     Dates: start: 20241230
  2. KETOROLAC TROMETHAMINE [Suspect]
     Active Substance: KETOROLAC TROMETHAMINE
     Dates: start: 20241230

REACTIONS (11)
  - Stevens-Johnson syndrome [None]
  - Blister [None]
  - Nasal crusting [None]
  - Eyelid margin crusting [None]
  - Hyperkeratosis [None]
  - Eczema [None]
  - Epidermal necrosis [None]
  - Unevaluable event [None]
  - Inflammation [None]
  - Erythema multiforme [None]
  - Toxic epidermal necrolysis [None]

NARRATIVE: CASE EVENT DATE: 20250109
